FAERS Safety Report 23810288 (Version 2)
Quarter: 2024Q2

REPORT INFORMATION
  Report Type: Spontaneous
  Country: GR (occurrence: GR)
  Receive Date: 20240502
  Receipt Date: 20240503
  Transmission Date: 20240716
  Serious: Yes (Other)
  Sender: FDA-Public Use
  Company Number: GR-ABBVIE-5722852

PATIENT
  Age: 32 Year
  Sex: Male

DRUGS (1)
  1. ADALIMUMAB [Suspect]
     Active Substance: ADALIMUMAB\ISOPROPYL ALCOHOL
     Indication: Hidradenitis
     Dosage: UNK
     Route: 058
     Dates: start: 2021, end: 202304

REACTIONS (4)
  - Granuloma [Unknown]
  - Pyoderma [Unknown]
  - Cutaneous leishmaniasis [Recovering/Resolving]
  - Visceral leishmaniasis [Recovering/Resolving]

NARRATIVE: CASE EVENT DATE: 20221001
